FAERS Safety Report 4737922-8 (Version None)
Quarter: 2005Q3

REPORT INFORMATION
  Report Type: 
  Country: None (occurrence: None)
  Receive Date: 20050809
  Receipt Date: 20050726
  Transmission Date: 20060218
  Serious: Yes (Other)
  Sender: FDA-Public Use
  Company Number: HQWYE519326JUL05

PATIENT
  Sex: Female

DRUGS (3)
  1. ENBREL [Suspect]
     Indication: RHEUMATOID ARTHRITIS
     Route: 058
     Dates: start: 20041201
  2. ENBREL [Suspect]
     Route: 058
  3. PREDNISONE [Concomitant]
     Dosage: DOSE NOT PROVIDED; DOSE BEING REDUCED OVER TIME
     Route: 048

REACTIONS (3)
  - DRUG INEFFECTIVE [None]
  - PLEURISY [None]
  - PNEUMONIA [None]
